FAERS Safety Report 25938950 (Version 1)
Quarter: 2025Q4

REPORT INFORMATION
  Report Type: Spontaneous
  Country: US (occurrence: US)
  Receive Date: 20251019
  Receipt Date: 20251019
  Transmission Date: 20260119
  Serious: No
  Sender: AMGEN
  Company Number: US-AMGEN-USASP2025205512

PATIENT
  Age: 79 Year
  Sex: Male

DRUGS (3)
  1. RIABNI [Suspect]
     Active Substance: RITUXIMAB-ARRX
     Indication: Non-Hodgkin^s lymphoma
     Dosage: DOSE ORDERED: 750 MG (STRENGTH 1 X 500 MG VIAL AND 3 X 100 MG VIAL)
     Route: 065
  2. RIABNI [Suspect]
     Active Substance: RITUXIMAB-ARRX
     Dosage: DOSE ORDERED: 750 MG (STRENGTH 1 X 500 MG VIAL AND 3 X 100 MG VIAL)
     Route: 065
  3. RIABNI [Suspect]
     Active Substance: RITUXIMAB-ARRX
     Dosage: DOSE ORDERED: 750 MG (STRENGTH 1 X 500 MG VIAL AND 3 X 100 MG VIAL)
     Route: 065

REACTIONS (1)
  - Blood pressure increased [Unknown]

NARRATIVE: CASE EVENT DATE: 20250829
